FAERS Safety Report 9053821 (Version 1)
Quarter: 2013Q1

REPORT INFORMATION
  Report Type: Spontaneous
  Country: SI (occurrence: SI)
  Receive Date: 20130207
  Receipt Date: 20130207
  Transmission Date: 20140127
  Serious: Yes (Other)
  Sender: FDA-Public Use
  Company Number: SI-GLAXOSMITHKLINE-B0795052A

PATIENT
  Sex: Female

DRUGS (2)
  1. LAMICTAL [Suspect]
     Indication: BIPOLAR DISORDER
     Dosage: 50MG TWICE PER DAY
     Route: 065
     Dates: start: 20111227, end: 20120229
  2. PAROXAT [Suspect]
     Indication: ANXIETY
     Dosage: 20MG PER DAY
     Route: 065
     Dates: start: 20080905, end: 20120229

REACTIONS (5)
  - Abortion spontaneous [Unknown]
  - Dysphagia [Unknown]
  - Mood altered [Unknown]
  - Agitation [Unknown]
  - Exposure during pregnancy [Unknown]
